FAERS Safety Report 7043672-8 (Version None)
Quarter: 2010Q4

REPORT INFORMATION
  Report Type: 
  Country: None (occurrence: None)
  Receive Date: 20101013
  Receipt Date: 20100727
  Transmission Date: 20110411
  Serious: No
  Sender: FDA-Public Use
  Company Number: US-ASTRAZENECA-2010SE35074

PATIENT
  Age: 32406 Day
  Sex: Female
  Weight: 44.5 kg

DRUGS (10)
  1. SYMBICORT [Suspect]
     Dosage: 160/4.5 2 PUFFS
     Route: 055
     Dates: start: 20100724
  2. SYMBICORT [Suspect]
     Dosage: 1 PUFF
     Route: 055
     Dates: end: 20100727
  3. BENTYL [Concomitant]
  4. SYNTHROID [Concomitant]
  5. HYZAAR [Concomitant]
  6. RESTORIL [Concomitant]
  7. LEXAPRO [Concomitant]
  8. LIPITOR [Concomitant]
  9. SPIRIVA [Concomitant]
  10. CARAFATE [Concomitant]
     Dosage: PRN

REACTIONS (7)
  - COUGH [None]
  - DYSPNOEA [None]
  - DYSURIA [None]
  - INCORRECT DOSE ADMINISTERED [None]
  - INSOMNIA [None]
  - RETCHING [None]
  - RHINORRHOEA [None]
